FAERS Safety Report 6366951-6 (Version None)
Quarter: 2009Q3

REPORT INFORMATION
  Report Type: 
  Country: None (occurrence: None)
  Receive Date: 20090821
  Receipt Date: 20090710
  Transmission Date: 20100115
  Serious: No
  Sender: FDA-Public Use
  Company Number: 8048997

PATIENT
  Age: 42 Year
  Sex: Female
  Weight: 58.9 kg

DRUGS (5)
  1. CIMZIA [Suspect]
     Indication: CROHN'S DISEASE
     Dosage: 400 MG SC
     Route: 058
     Dates: start: 20081101
  2. LOMOTIL [Concomitant]
  3. PERCOCET [Concomitant]
  4. FENTANYL [Concomitant]
  5. PEPCID [Concomitant]

REACTIONS (1)
  - INJECTION SITE REACTION [None]
